FAERS Safety Report 12850301 (Version 1)
Quarter: 2016Q4

REPORT INFORMATION
  Report Type: Spontaneous
  Country: US (occurrence: US)
  Receive Date: 20161014
  Receipt Date: 20161014
  Transmission Date: 20170207
  Serious: Yes (Other)
  Sender: FDA-Public Use
  Company Number: US-ELI_LILLY_AND_COMPANY-US201610002033

PATIENT
  Age: 76 Year
  Sex: Female

DRUGS (9)
  1. HUMALOG [Suspect]
     Active Substance: INSULIN LISPRO
     Indication: TYPE 2 DIABETES MELLITUS
     Dosage: 11 U, EACH MORNING
     Route: 065
     Dates: start: 201605
  2. HUMALOG [Suspect]
     Active Substance: INSULIN LISPRO
     Indication: PRODUCT USED FOR UNKNOWN INDICATION
     Dosage: UNK, UNKNOWN
     Route: 065
  3. HUMALOG [Suspect]
     Active Substance: INSULIN LISPRO
     Dosage: 13 U, EACH EVENING
     Route: 065
  4. HUMALOG [Suspect]
     Active Substance: INSULIN LISPRO
     Dosage: 13 U, AT NOON
     Route: 065
     Dates: start: 201605
  5. HUMALOG [Suspect]
     Active Substance: INSULIN LISPRO
     Dosage: 13 U, EACH EVENING
     Route: 065
     Dates: start: 201605
  6. HUMALOG [Suspect]
     Active Substance: INSULIN LISPRO
     Dosage: 11 U, EACH MORNING
     Route: 065
  7. HUMALOG [Suspect]
     Active Substance: INSULIN LISPRO
     Dosage: 13 U, AT NOON
     Route: 065
  8. HUMALOG [Suspect]
     Active Substance: INSULIN LISPRO
     Dosage: UNK, UNKNOWN
     Route: 065
  9. LEVEMIR [Concomitant]
     Active Substance: INSULIN DETEMIR
     Dosage: UNK, EACH EVENING
     Route: 065

REACTIONS (5)
  - Product selection error [Unknown]
  - Hernia [Unknown]
  - Postoperative wound infection [Recovering/Resolving]
  - Blood glucose increased [Not Recovered/Not Resolved]
  - Malaise [Unknown]

NARRATIVE: CASE EVENT DATE: 20161001
